FAERS Safety Report 14670775 (Version 2)
Quarter: 2018Q1

REPORT INFORMATION
  Report Type: Spontaneous
  Country: DE (occurrence: DE)
  Receive Date: 20180322
  Receipt Date: 20180328
  Transmission Date: 20180509
  Serious: Yes (Hospitalization, Other)
  Sender: FDA-Public Use
  Company Number: DE-009507513-1803DEU008976

PATIENT
  Sex: Female

DRUGS (3)
  1. METFORMIN [Concomitant]
     Active Substance: METFORMIN HYDROCHLORIDE
     Dosage: ONLY AT NIGHT
  2. JANUVIA [Suspect]
     Active Substance: SITAGLIPTIN PHOSPHATE
     Dosage: 100 MG, UNK
     Route: 048
     Dates: start: 201801, end: 2018
  3. INSULIN [Concomitant]
     Active Substance: INSULIN NOS
     Dosage: ONLY AT NIGHT

REACTIONS (7)
  - Arrhythmia [Recovering/Resolving]
  - Vomiting [Recovered/Resolved]
  - Cerebrovascular accident [Recovering/Resolving]
  - Blood pressure increased [Recovering/Resolving]
  - Weight decreased [Recovering/Resolving]
  - Malaise [Recovered/Resolved]
  - Abdominal pain lower [Recovered/Resolved]

NARRATIVE: CASE EVENT DATE: 2018
